FAERS Safety Report 11124282 (Version 4)
Quarter: 2015Q4

REPORT INFORMATION
  Report Type: Report from Study
  Country: CA (occurrence: CA)
  Receive Date: 20150520
  Receipt Date: 20151005
  Transmission Date: 20160304
  Serious: Yes (Other)
  Sender: FDA-Public Use
  Company Number: CA-ROCHE-1171884

PATIENT
  Age: 62 Year
  Sex: Female
  Weight: 85 kg

DRUGS (13)
  1. ACTEMRA [Suspect]
     Active Substance: TOCILIZUMAB
     Indication: RHEUMATOID ARTHRITIS
     Dosage: MOST RECENT DOSE PRIOR TO SAE WAS: 24/APR/2015
     Route: 042
     Dates: start: 20121115, end: 2015
  2. ACTONEL [Concomitant]
     Active Substance: RISEDRONATE SODIUM
  3. EFFEXOR [Concomitant]
     Active Substance: VENLAFAXINE HYDROCHLORIDE
  4. ACTEMRA [Suspect]
     Active Substance: TOCILIZUMAB
     Indication: RHEUMATOID ARTHRITIS
     Route: 058
     Dates: start: 2015
  5. FOLIC ACID. [Concomitant]
     Active Substance: FOLIC ACID
  6. PLAVIX [Concomitant]
     Active Substance: CLOPIDOGREL BISULFATE
  7. HYDROCHLOROTHIAZIDE. [Concomitant]
     Active Substance: HYDROCHLOROTHIAZIDE
  8. RITUXAN [Suspect]
     Active Substance: RITUXIMAB
     Indication: RHEUMATOID ARTHRITIS
     Route: 042
     Dates: start: 20120613, end: 20120703
  9. METHOTREXATE [Concomitant]
     Active Substance: METHOTREXATE
  10. PREDNISONE. [Concomitant]
     Active Substance: PREDNISONE
  11. SYNTHROID [Concomitant]
     Active Substance: LEVOTHYROXINE SODIUM
  12. NORTRIPTYLINE [Concomitant]
     Active Substance: NORTRIPTYLINE
  13. LIPITOR [Concomitant]
     Active Substance: ATORVASTATIN CALCIUM

REACTIONS (12)
  - Headache [Recovered/Resolved]
  - Eye haemorrhage [Not Recovered/Not Resolved]
  - Transient ischaemic attack [Unknown]
  - Poor venous access [Unknown]
  - White blood cell count increased [Unknown]
  - Blood pressure increased [Recovered/Resolved]
  - Abdominal pain upper [Recovering/Resolving]
  - Hypertension [Unknown]
  - Dizziness [Recovered/Resolved]
  - Pneumonia [Recovered/Resolved]
  - Nasopharyngitis [Recovering/Resolving]
  - Arthralgia [Not Recovered/Not Resolved]

NARRATIVE: CASE EVENT DATE: 20121213
